FAERS Safety Report 16990297 (Version 1)
Quarter: 2019Q4

REPORT INFORMATION
  Report Type: Report from Study
  Country: DE (occurrence: DE)
  Receive Date: 20191104
  Receipt Date: 20191104
  Transmission Date: 20200122
  Serious: Yes (Death, Hospitalization, Other)
  Sender: FDA-Public Use
  Company Number: DE-BRISTOL-MYERS SQUIBB COMPANY-BMS-2019-102952

PATIENT
  Age: 69 Year
  Sex: Male

DRUGS (2)
  1. NIVOLUMAB [Suspect]
     Active Substance: NIVOLUMAB
     Indication: MALIGNANT MELANOMA
     Dosage: 78 MILLIGRAM, Q3WK
     Route: 042
     Dates: start: 20190822, end: 20191002
  2. IPILIMUMAB [Suspect]
     Active Substance: IPILIMUMAB
     Indication: MALIGNANT MELANOMA
     Dosage: 234 MILLIGRAM
     Route: 065
     Dates: start: 20190822, end: 20191002

REACTIONS (6)
  - Malignant neoplasm progression [Fatal]
  - Pulmonary oedema [Not Recovered/Not Resolved]
  - C-reactive protein increased [Unknown]
  - Pancytopenia [Not Recovered/Not Resolved]
  - Pulmonary embolism [Unknown]
  - Haemoglobin decreased [Unknown]

NARRATIVE: CASE EVENT DATE: 20190906
